FAERS Safety Report 9808893 (Version 2)
Quarter: 2014Q1

REPORT INFORMATION
  Report Type: Report from Study
  Country: US (occurrence: US)
  Receive Date: 20140110
  Receipt Date: 20140122
  Transmission Date: 20141002
  Serious: Yes (Death)
  Sender: FDA-Public Use
  Company Number: US-ABBVIE-14P-163-1186958-00

PATIENT
  Age: 61 Year
  Sex: Female
  Weight: 44.04 kg

DRUGS (6)
  1. HUMIRA [Suspect]
     Indication: RHEUMATOID ARTHRITIS
     Route: 058
     Dates: start: 2012, end: 201312
  2. HUMIRA [Suspect]
     Indication: OSTEOPOROSIS
  3. HYDROCODONE [Concomitant]
     Indication: PRODUCT USED FOR UNKNOWN INDICATION
  4. CYCLOBENZAPRINE [Concomitant]
     Indication: PRODUCT USED FOR UNKNOWN INDICATION
  5. VENLAFAXINE [Concomitant]
     Indication: PRODUCT USED FOR UNKNOWN INDICATION
  6. LEVOTHYROXINE [Concomitant]
     Indication: PRODUCT USED FOR UNKNOWN INDICATION

REACTIONS (10)
  - Unresponsive to stimuli [Fatal]
  - Brain death [Fatal]
  - Cerebrovascular accident [Fatal]
  - Brain oedema [Fatal]
  - Chest pain [Fatal]
  - Acute respiratory distress syndrome [Fatal]
  - Hypoglycaemia [Fatal]
  - Brain stem infarction [Fatal]
  - Brain herniation [Fatal]
  - Poor quality sleep [Unknown]
